FAERS Safety Report 5794781-2 (Version None)
Quarter: 2008Q2

REPORT INFORMATION
  Report Type: 
  Country: None (occurrence: None)
  Receive Date: 20080626
  Receipt Date: 20080619
  Transmission Date: 20081010
  Serious: Yes (Life-Threatening, Other)
  Sender: FDA-Public Use
  Company Number: GP061908

PATIENT
  Age: 4 Year
  Sex: Male

DRUGS (1)
  1. GRISEOFULVIN [Suspect]
     Indication: TINEA CAPITIS
     Dosage: QD

REACTIONS (13)
  - CHEILITIS [None]
  - CONJUNCTIVITIS [None]
  - DERMATITIS BULLOUS [None]
  - EPIDERMAL NECROSIS [None]
  - GENITAL EROSION [None]
  - ORAL MUCOSA EROSION [None]
  - PERIVASCULAR DERMATITIS [None]
  - PURPURA [None]
  - PYREXIA [None]
  - RASH [None]
  - RASH ERYTHEMATOUS [None]
  - STEVENS-JOHNSON SYNDROME [None]
  - TOXIC SKIN ERUPTION [None]
